FAERS Safety Report 4519924-X (Version None)
Quarter: 2004Q4

REPORT INFORMATION
  Report Type: 
  Country: None (occurrence: None)
  Receive Date: 20041202
  Receipt Date: 20041202
  Transmission Date: 20050328
  Serious: Yes (Hospitalization)
  Sender: FDA-Public Use
  Company Number: None

PATIENT
  Sex: Male

DRUGS (10)
  1. GABAPENTIN [Suspect]
     Indication: NEUROPATHY
     Dosage: 600 MG  BID ORAL
     Route: 048
  2. METHADONE HCL [Suspect]
     Indication: PAIN
     Dosage: 10  MG BID ORAL
     Route: 048
  3. ATENOLOL [Concomitant]
  4. BUSPIRONE [Concomitant]
  5. CYANOCOBALAMIN [Concomitant]
  6. DOCUSATE [Concomitant]
  7. FUROSEMIDE [Concomitant]
  8. METOLAZONE [Concomitant]
  9. OMEPRAZOLE [Concomitant]
  10. KCL TAB [Concomitant]

REACTIONS (3)
  - ASTHENIA [None]
  - GENERAL PHYSICAL HEALTH DETERIORATION [None]
  - WEIGHT DECREASED [None]
